FAERS Safety Report 6722507-4 (Version None)
Quarter: 2010Q2

REPORT INFORMATION
  Report Type: 
  Country: None (occurrence: None)
  Receive Date: 20100505
  Receipt Date: 20100219
  Transmission Date: 20101027
  Serious: Yes (Other)
  Sender: FDA-Public Use
  Company Number: WAES 1002USA03264

PATIENT
  Age: 38 Year
  Sex: Male
  Weight: 114.3065 kg

DRUGS (9)
  1. ISENTRESS [Suspect]
     Indication: ACQUIRED IMMUNODEFICIENCY SYNDROME
     Dosage: 400 MG/BID/PO
     Route: 048
     Dates: start: 20090716, end: 20100201
  2. INTELENCE [Concomitant]
  3. MARINOL [Concomitant]
  4. NORVIR [Concomitant]
  5. PREZISTA [Concomitant]
  6. ROXICODONE [Concomitant]
  7. VALTREX [Concomitant]
  8. ALPRAZOLAM [Concomitant]
  9. ETRAVIRINE [Concomitant]

REACTIONS (14)
  - ABDOMINAL PAIN [None]
  - AMNESIA [None]
  - CRYING [None]
  - DEPRESSION [None]
  - FATIGUE [None]
  - FEELING ABNORMAL [None]
  - MANIA [None]
  - MENTAL DISORDER [None]
  - NAUSEA [None]
  - NERVOUSNESS [None]
  - PARANOIA [None]
  - PSYCHOTIC DISORDER [None]
  - SUICIDAL IDEATION [None]
  - TOURETTE'S DISORDER [None]
